FAERS Safety Report 10525661 (Version 1)
Quarter: 2014Q4

REPORT INFORMATION
  Report Type: Spontaneous
  Country: DE (occurrence: DE)
  Receive Date: 20141017
  Receipt Date: 20141017
  Transmission Date: 20150528
  Serious: Yes (Other)
  Sender: FDA-Public Use
  Company Number: PHHY2014DE132214

PATIENT
  Sex: Female

DRUGS (1)
  1. AFINITOR [Suspect]
     Active Substance: EVEROLIMUS
     Indication: PRODUCT USED FOR UNKNOWN INDICATION
     Route: 065

REACTIONS (5)
  - Gastrointestinal sounds abnormal [Recovering/Resolving]
  - Headache [Recovering/Resolving]
  - Gastrointestinal disorder [Not Recovered/Not Resolved]
  - Skin disorder [Recovering/Resolving]
  - Intestinal perforation [Unknown]
